FAERS Safety Report 24194845 (Version 2)
Quarter: 2024Q3

REPORT INFORMATION
  Report Type: Spontaneous
  Country: JP (occurrence: None)
  Receive Date: 20240809
  Receipt Date: 20240913
  Transmission Date: 20241017
  Serious: Yes (Life-Threatening, Other)
  Sender: ASTRAZENECA
  Company Number: 2024A178567

PATIENT
  Age: 71 Year
  Sex: Male

DRUGS (6)
  1. TAGRISSO [Suspect]
     Active Substance: OSIMERTINIB
     Indication: Non-small cell lung cancer
     Route: 048
     Dates: start: 20240423, end: 20240719
  2. CORTRIL [Concomitant]
     Active Substance: HYDROCORTISONE
  3. LEVOTHYROXINE [Concomitant]
     Active Substance: LEVOTHYROXINE\LEVOTHYROXINE SODIUM
  4. SILODOSIN [Concomitant]
     Active Substance: SILODOSIN
  5. VIBEGRON [Concomitant]
     Active Substance: VIBEGRON
  6. MIYA-BM [Concomitant]
     Active Substance: CLOSTRIDIUM BUTYRICUM SPORES STRAIN M-55

REACTIONS (1)
  - Aplastic anaemia [Unknown]

NARRATIVE: CASE EVENT DATE: 20240718
